FAERS Safety Report 7735590-4 (Version None)
Quarter: 2011Q3

REPORT INFORMATION
  Report Type: 
  Country: None (occurrence: None)
  Receive Date: 20110907
  Receipt Date: 20110830
  Transmission Date: 20111222
  Serious: Yes (Hospitalization)
  Sender: FDA-Public Use
  Company Number: AU-B.I. PHARMACEUTICALS,INC./RIDGEFIELD-2011-AU-00654AU

PATIENT
  Sex: Female
  Weight: 65 kg

DRUGS (16)
  1. EUTROXSIG [Concomitant]
     Dosage: 50 MCG
  2. PROCHLORPERAZINE [Concomitant]
     Dosage: 20 MG
  3. VENTOLIN HFA [Concomitant]
     Dosage: 2 PUFFS 4 HOURLY AS REQUIRED
     Route: 055
  4. REFRESH LIQUIGEL EYE DROPS [Concomitant]
     Dosage: 10 MG/ML 1-2 DROPS AS REQUIRED
  5. NEO-B12 [Concomitant]
     Dosage: 1000 MCG/ML
     Route: 051
  6. MINAX [Concomitant]
     Dosage: 100 MG
  7. PRADAXA [Suspect]
     Indication: ATRIAL FIBRILLATION
     Dosage: 220 MG
  8. SPIRIVA [Concomitant]
     Dosage: 18 MCG
     Route: 055
  9. SONE [Concomitant]
     Dosage: 20 MG
  10. RABEPRAZOLE SODIUM [Concomitant]
     Dosage: 20 MG
  11. SPAN-K [Concomitant]
     Dosage: 1200 MG
  12. PANADOL OSTEO [Concomitant]
     Dosage: 1-2 TABLETS THREE TIMES DAILY
  13. DITHIAZIDE [Concomitant]
     Dosage: 12.5 MG
  14. PERINDOPRIL ERBUMINE [Concomitant]
     Dosage: 10 MG
  15. NORVASC [Concomitant]
     Dosage: 2.5 MG
  16. LIPITOR [Concomitant]
     Dosage: 10 MG

REACTIONS (2)
  - LOWER RESPIRATORY TRACT INFECTION [None]
  - ACTIVITIES OF DAILY LIVING IMPAIRED [None]
